FAERS Safety Report 25765235 (Version 1)
Quarter: 2025Q3

REPORT INFORMATION
  Report Type: Spontaneous
  Country: JP (occurrence: JP)
  Receive Date: 20250905
  Receipt Date: 20250905
  Transmission Date: 20251021
  Serious: Yes (Hospitalization, Other)
  Sender: RANBAXY
  Company Number: JP-SUN PHARMACEUTICAL INDUSTRIES INC-2025R1-525551

PATIENT
  Age: 6 Year
  Sex: Male
  Weight: 15 kg

DRUGS (1)
  1. GUANFACINE [Suspect]
     Active Substance: GUANFACINE
     Indication: Attention deficit hyperactivity disorder
     Route: 065

REACTIONS (5)
  - Toxicity to various agents [Unknown]
  - Hypersomnia [Unknown]
  - Bradycardia [Unknown]
  - Accidental exposure to product by child [Unknown]
  - Prescription drug used without a prescription [Unknown]
